FAERS Safety Report 6273333-4 (Version None)
Quarter: 2009Q3

REPORT INFORMATION
  Report Type: 
  Country: None (occurrence: None)
  Receive Date: 20090715
  Receipt Date: 20090703
  Transmission Date: 20100115
  Serious: Yes (Hospitalization)
  Sender: FDA-Public Use
  Company Number: 8046104

PATIENT
  Sex: Female

DRUGS (4)
  1. KEPPRA [Suspect]
  2. KEPPRA [Suspect]
     Dosage: IV
     Route: 042
  3. KEPPRA [Suspect]
  4. NEURONTIN [Concomitant]

REACTIONS (3)
  - CARDIAC ARREST [None]
  - CONDITION AGGRAVATED [None]
  - DEMENTIA [None]
